FAERS Safety Report 7821044-3 (Version None)
Quarter: 2011Q4

REPORT INFORMATION
  Report Type: 
  Country: None (occurrence: None)
  Receive Date: 20111018
  Receipt Date: 20111012
  Transmission Date: 20120403
  Serious: No
  Sender: FDA-Public Use
  Company Number: US-PFIZER INC-2011244394

PATIENT
  Sex: Female
  Weight: 54.4 kg

DRUGS (3)
  1. ESTRING [Suspect]
     Indication: HYSTERECTOMY
     Dosage: 2 MG, EVERY 3 MONTHS
     Route: 067
  2. LEXAPRO [Concomitant]
     Dosage: 10 MG, 1X/DAY
  3. ACTONEL [Concomitant]
     Dosage: 35 MG, WEEKLY

REACTIONS (1)
  - DRUG INEFFECTIVE [None]
